FAERS Safety Report 10530661 (Version 1)
Quarter: 2014Q4

REPORT INFORMATION
  Report Type: Spontaneous
  Country: US (occurrence: None)
  Receive Date: 20141020
  Receipt Date: 20141020
  Transmission Date: 20150528
  Serious: No
  Sender: FDA-Public Use
  Company Number: None

PATIENT
  Age: 79 Year
  Sex: Female

DRUGS (1)
  1. FORTEO [Suspect]
     Active Substance: TERIPARATIDE
     Dosage: 20MCG  EVERYDAY IN EVENING AT BEDTIME 3MONTHS ON + 3MON OFF  SUBCUTANEOUSLY
     Route: 058
     Dates: start: 20140508

REACTIONS (3)
  - Heart rate increased [None]
  - Extrasystoles [None]
  - Heart rate irregular [None]

NARRATIVE: CASE EVENT DATE: 20141016
